FAERS Safety Report 19677441 (Version 1)
Quarter: 2021Q3

REPORT INFORMATION
  Report Type: Other
  Country: US (occurrence: US)
  Receive Date: 20210809
  Receipt Date: 20210809
  Transmission Date: 20211014
  Serious: Yes (Other)
  Sender: FDA-Public Use
  Company Number: US-NOVA LABORATORIES LIMITED-2114797

PATIENT
  Age: 5 Year
  Sex: Female

DRUGS (9)
  1. VINCRISTINE [Suspect]
     Active Substance: VINCRISTINE
     Route: 042
  2. METHOTREXATE. [Suspect]
     Active Substance: METHOTREXATE
     Route: 037
  3. DEXAMETHASONE. [Suspect]
     Active Substance: DEXAMETHASONE
  4. CYCLOPHOSPHAMIDE. [Suspect]
     Active Substance: CYCLOPHOSPHAMIDE
  5. CYTARABINE. [Suspect]
     Active Substance: CYTARABINE
     Route: 037
  6. METHOTREXATE. [Suspect]
     Active Substance: METHOTREXATE
     Route: 042
  7. PURIXAN [Suspect]
     Active Substance: MERCAPTOPURINE
     Indication: B-CELL TYPE ACUTE LEUKAEMIA
     Route: 048
  8. ASPARAGINASE [Suspect]
     Active Substance: ASPARAGINASE
  9. FOLINIC ACID [Suspect]
     Active Substance: LEUCOVORIN

REACTIONS (8)
  - Sepsis [Unknown]
  - Diarrhoea [Recovered/Resolved]
  - Psoriasis [Recovered/Resolved]
  - Thrombocytopenia [Recovered/Resolved]
  - Acute kidney injury [Recovered/Resolved]
  - Vomiting [Recovered/Resolved]
  - Anaemia [Recovered/Resolved]
  - Drug interaction [None]
